FAERS Safety Report 18321305 (Version 2)
Quarter: 2022Q2

REPORT INFORMATION
  Report Type: Spontaneous
  Country: FR (occurrence: FR)
  Receive Date: 20200928
  Receipt Date: 20220404
  Transmission Date: 20220721
  Serious: Yes (Life-Threatening, Other)
  Sender: FDA-Public Use
  Company Number: None

PATIENT
  Age: 40 Year
  Sex: Male
  Weight: 75 kg

DRUGS (4)
  1. NITRAZEPAM [Suspect]
     Active Substance: NITRAZEPAM
     Indication: Product used for unknown indication
     Dosage: UNK, NOT SPECIFIED
     Route: 048
     Dates: start: 20200531, end: 20200531
  2. ACETAMINOPHEN [Suspect]
     Active Substance: ACETAMINOPHEN
     Indication: Product used for unknown indication
     Dosage: 8 GRAM, TOTAL
     Route: 048
     Dates: start: 20200531, end: 20200531
  3. CLOMIPRAMINE [Suspect]
     Active Substance: CLOMIPRAMINE
     Indication: Product used for unknown indication
     Dosage: UNK,20 TABLETS OF 75 MG
     Route: 048
     Dates: start: 20200531, end: 20200531
  4. TRIMEPRAZINE [Suspect]
     Active Substance: TRIMEPRAZINE
     Indication: Product used for unknown indication
     Dosage: 30 MILLILITER, TOTAL
     Route: 048
     Dates: start: 20200531, end: 20200531

REACTIONS (3)
  - Oxygen saturation decreased [Recovered/Resolved]
  - Coma [Recovered/Resolved]
  - Poisoning deliberate [Unknown]

NARRATIVE: CASE EVENT DATE: 20200531
